FAERS Safety Report 7097896-4 (Version None)
Quarter: 2010Q4

REPORT INFORMATION
  Report Type: 
  Country: None (occurrence: None)
  Receive Date: 20101112
  Receipt Date: 20101103
  Transmission Date: 20110411
  Serious: Yes (Other)
  Sender: FDA-Public Use
  Company Number: US-KINGPHARMUSA00001-K201001369

PATIENT
  Sex: Female

DRUGS (2)
  1. EMBEDA [Suspect]
     Indication: ARTHRALGIA
     Dosage: 20 MG, BID
     Route: 048
     Dates: start: 20101011
  2. LORAZEPAM [Suspect]
     Indication: MUSCLE SPASMS
     Dosage: UNK
     Dates: start: 20101015

REACTIONS (3)
  - ACUTE PSYCHOSIS [None]
  - HALLUCINATION, VISUAL [None]
  - MUSCLE SPASMS [None]
